FAERS Safety Report 17357717 (Version 1)
Quarter: 2020Q1

REPORT INFORMATION
  Report Type: Spontaneous
  Country: US (occurrence: US)
  Receive Date: 20200131
  Receipt Date: 20200131
  Transmission Date: 20200409
  Serious: No
  Sender: FDA-Public Use
  Company Number: US-GALDERMA-US19040107

PATIENT

DRUGS (1)
  1. DIFFERIN GEL [Suspect]
     Active Substance: ADAPALENE
     Indication: ACNE
     Dosage: 0.1%
     Route: 061

REACTIONS (7)
  - Eyelid skin dryness [Recovering/Resolving]
  - Eyelid exfoliation [Recovering/Resolving]
  - Erythema of eyelid [Recovering/Resolving]
  - Drug ineffective [Unknown]
  - Skin burning sensation [Unknown]
  - Skin irritation [Unknown]
  - Swelling of eyelid [Recovering/Resolving]
